FAERS Safety Report 13103311 (Version 2)
Quarter: 2017Q1

REPORT INFORMATION
  Report Type: Spontaneous
  Country: US (occurrence: US)
  Receive Date: 20170110
  Receipt Date: 20170117
  Transmission Date: 20170428
  Serious: Yes (Other)
  Sender: FDA-Public Use
  Company Number: US-BEH-2017076926

PATIENT
  Age: 10 Year
  Sex: Female

DRUGS (4)
  1. FERROUS SULFATE. [Concomitant]
     Active Substance: FERROUS SULFATE
  2. AMICAR [Concomitant]
     Active Substance: AMINOCAPROIC ACID
  3. HAEMATE P [Suspect]
     Active Substance: ANTIHEMOPHILIC FACTOR HUMAN
     Dosage: 2000 RCOF IU, BIW
     Route: 042
     Dates: start: 20131204
  4. HAEMATE P [Suspect]
     Active Substance: ANTIHEMOPHILIC FACTOR HUMAN
     Indication: VON WILLEBRAND^S DISEASE
     Dosage: 2000 IU, PRN
     Route: 042
     Dates: start: 2007

REACTIONS (3)
  - Tooth loss [Unknown]
  - Epistaxis [Unknown]
  - Mouth haemorrhage [Unknown]
